FAERS Safety Report 9671988 (Version 1)
Quarter: 2013Q4

REPORT INFORMATION
  Report Type: Spontaneous
  Country: US (occurrence: None)
  Receive Date: 20131105
  Receipt Date: 20131105
  Transmission Date: 20140711
  Serious: Yes (Life-Threatening, Hospitalization)
  Sender: FDA-Public Use
  Company Number: None

PATIENT
  Age: 87 None
  Sex: Female

DRUGS (5)
  1. CYMBALTA [Suspect]
     Indication: DEPRESSION
     Dosage: 30 MG 1 PILL DAILY MOUTH
     Route: 048
     Dates: start: 20130416, end: 20130423
  2. BENECAR [Concomitant]
  3. DITALIZEN [Concomitant]
  4. LASIX [Concomitant]
  5. WARFERIN [Concomitant]

REACTIONS (3)
  - Asthenia [None]
  - Surgery [None]
  - Fall [None]
